FAERS Safety Report 5675276-3 (Version None)
Quarter: 2008Q1

REPORT INFORMATION
  Report Type: 
  Country: None (occurrence: None)
  Receive Date: 20080320
  Receipt Date: 20080310
  Transmission Date: 20080703
  Serious: No
  Sender: FDA-Public Use
  Company Number: FR-ELI_LILLY_AND_COMPANY-FR200803002756

PATIENT
  Sex: Female

DRUGS (3)
  1. DULOXETINE HYDROCHLORIDE [Suspect]
     Indication: PAIN
     Dosage: 6 MG, DAILY (1/D)
     Route: 048
     Dates: start: 20080101
  2. TYSABRI [Concomitant]
  3. MORPHINE [Concomitant]
     Indication: PAIN

REACTIONS (1)
  - TRANSAMINASES INCREASED [None]
